FAERS Safety Report 7232703-8 (Version None)
Quarter: 2011Q1

REPORT INFORMATION
  Report Type: 
  Country: None (occurrence: None)
  Receive Date: 20110107
  Receipt Date: 20110103
  Transmission Date: 20110831
  Serious: Yes (Other)
  Sender: FDA-Public Use
  Company Number: 0215768

PATIENT

DRUGS (1)
  1. TACHOSIL [Suspect]
     Indication: TRAUMATIC LIVER INJURY
     Dosage: 40 MG
     Dates: start: 20100101

REACTIONS (1)
  - SYSTEMIC CANDIDA [None]
